FAERS Safety Report 7386039-5 (Version None)
Quarter: 2011Q1

REPORT INFORMATION
  Report Type: 
  Country: None (occurrence: None)
  Receive Date: 20110331
  Receipt Date: 20110317
  Transmission Date: 20110831
  Serious: Yes (Hospitalization, Other)
  Sender: FDA-Public Use
  Company Number: US-ELI_LILLY_AND_COMPANY-US201008004925

PATIENT
  Sex: Female

DRUGS (11)
  1. SYNTHROID [Concomitant]
  2. CELEBREX [Concomitant]
  3. PROVERA [Concomitant]
  4. NORVASC [Concomitant]
  5. BYSTOLIC [Concomitant]
  6. NITROGLYCERIN [Concomitant]
  7. DIOVAN [Concomitant]
  8. FORTEO [Suspect]
     Indication: OSTEOPOROSIS
     Dosage: 20 UG, DAILY (1/D)
     Route: 058
     Dates: start: 20100807
  9. TEKTURNA [Concomitant]
  10. PREMARIN [Concomitant]
  11. LASIX [Concomitant]

REACTIONS (14)
  - ALOPECIA [None]
  - EXCORIATION [None]
  - MASS [None]
  - FALL [None]
  - DEHYDRATION [None]
  - JOINT INJURY [None]
  - SYNCOPE [None]
  - BACK PAIN [None]
  - MALAISE [None]
  - CONTUSION [None]
  - FEELING ABNORMAL [None]
  - MUSCLE SPASMS [None]
  - MEDICATION ERROR [None]
  - CONSTIPATION [None]
